FAERS Safety Report 4620470-3 (Version None)
Quarter: 2005Q1

REPORT INFORMATION
  Report Type: 
  Country: None (occurrence: None)
  Receive Date: 20050324
  Receipt Date: 20050317
  Transmission Date: 20050727
  Serious: Yes (Hospitalization)
  Sender: FDA-Public Use
  Company Number: HQWYE876508MAR05

PATIENT
  Age: 42 Year
  Sex: Female

DRUGS (4)
  1. CEFSPAN            (CEFIXIME,) [Suspect]
     Indication: NASOPHARYNGITIS
     Dosage: 100 MG TWICE DAILY ORAL
     Route: 048
     Dates: start: 20050224, end: 20050225
  2. CALONAL                (PARACETAMOL,) [Suspect]
     Indication: NASOPHARYNGITIS
     Dosage: ORAL
     Route: 048
     Dates: start: 20050224, end: 20050225
  3. LOXONIN (LOXOPROFEN SODIUM,) [Suspect]
     Indication: NASOPHARYNGITIS
     Dosage: ORAL
     Route: 048
     Dates: start: 20050224, end: 20050225
  4. MUCOSTA                         (REBAMIPIDE) [Suspect]
     Indication: NASOPHARYNGITIS
     Dosage: ORAL
     Route: 048
     Dates: start: 20050224, end: 20050225

REACTIONS (4)
  - DERMATITIS EXFOLIATIVE [None]
  - MALAISE [None]
  - PYREXIA [None]
  - URTICARIA [None]
